FAERS Safety Report 5292581-3 (Version None)
Quarter: 2007Q2

REPORT INFORMATION
  Report Type: 
  Country: None (occurrence: None)
  Receive Date: 20070404
  Receipt Date: 20070329
  Transmission Date: 20071010
  Serious: Yes (Life-Threatening, Hospitalization, Disabling)
  Sender: FDA-Public Use
  Company Number: OSCN-GE-0703S-0140

PATIENT
  Age: 32 Year
  Sex: Female

DRUGS (6)
  1. OMNISCAN [Suspect]
     Dosage: SEE IMAGE
     Route: 042
     Dates: start: 20021119, end: 20021119
  2. OMNISCAN [Suspect]
     Dosage: SEE IMAGE
     Route: 042
     Dates: start: 20031205, end: 20031205
  3. OMNISCAN [Suspect]
     Dosage: SEE IMAGE
     Route: 042
     Dates: start: 20040810, end: 20040810
  4. OMNISCAN [Suspect]
     Dosage: SEE IMAGE
     Route: 042
     Dates: start: 20041202, end: 20041202
  5. OMNISCAN [Suspect]
     Dosage: SEE IMAGE
     Route: 042
     Dates: start: 20050216, end: 20050216
  6. CONTRAST MEDIUM UNSPECIFIED [Concomitant]

REACTIONS (1)
  - NEPHROGENIC FIBROSING DERMOPATHY [None]
